FAERS Safety Report 6011029-4 (Version None)
Quarter: 2008Q4

REPORT INFORMATION
  Report Type: 
  Country: None (occurrence: None)
  Receive Date: 20081218
  Receipt Date: 20081201
  Transmission Date: 20090506
  Serious: Yes (Other)
  Sender: FDA-Public Use
  Company Number: SE-PFIZER INC-2008096689

PATIENT

DRUGS (3)
  1. VARENICLINE TARTRATE [Suspect]
     Indication: TOBACCO ABUSE
     Dosage: 1 MG, 2X/DAY
     Route: 048
     Dates: start: 20080918, end: 20081112
  2. CANDESARTAN [Concomitant]
     Dates: start: 20070704
  3. AMLODIPINE [Concomitant]
     Route: 048
     Dates: start: 20080101

REACTIONS (2)
  - LOSS OF CONSCIOUSNESS [None]
  - ROAD TRAFFIC ACCIDENT [None]
